FAERS Safety Report 11569237 (Version 1)
Quarter: 2015Q3

REPORT INFORMATION
  Report Type: Spontaneous
  Country: US (occurrence: None)
  Receive Date: 20150928
  Receipt Date: 20150928
  Transmission Date: 20151125
  Serious: Yes (Disabling)
  Sender: FDA-Public Use
  Company Number: None

PATIENT
  Age: 34 Year
  Sex: Female
  Weight: 50.8 kg

DRUGS (6)
  1. MULTIVITAMINS [Concomitant]
     Active Substance: VITAMINS
  2. ANTACIDS [Concomitant]
     Active Substance: UNSPECIFIED INGREDIENT
  3. BIRTH CONTROL PILLS [Concomitant]
     Active Substance: UNSPECIFIED INGREDIENT
  4. CIPROFLOXACIN. [Suspect]
     Active Substance: CIPROFLOXACIN
     Indication: URINARY TRACT INFECTION
     Dosage: 1 PILL
     Route: 048
     Dates: start: 20150813, end: 20150816
  5. KLONOPIN [Concomitant]
     Active Substance: CLONAZEPAM
  6. SLEEP AIDS [Concomitant]

REACTIONS (7)
  - Anxiety [None]
  - Visual impairment [None]
  - Myalgia [None]
  - Tachycardia [None]
  - Arthralgia [None]
  - Neuropathy peripheral [None]
  - Impaired work ability [None]

NARRATIVE: CASE EVENT DATE: 20150815
